FAERS Safety Report 5519633-4 (Version None)
Quarter: 2007Q4

REPORT INFORMATION
  Report Type: 
  Country: None (occurrence: None)
  Receive Date: 20071114
  Receipt Date: 20071113
  Transmission Date: 20080405
  Serious: No
  Sender: FDA-Public Use
  Company Number: C-07-0024

PATIENT
  Age: 64 Year
  Sex: Male
  Weight: 145 kg

DRUGS (14)
  1. DEXAMETHASONE [Suspect]
     Indication: LICHEN PLANUS
     Dosage: ORAL
     Route: 048
     Dates: start: 20070808
  2. ALLOPURINOL [Concomitant]
  3. ZETIA [Concomitant]
  4. LISINOPRIL [Concomitant]
  5. SINGULAIR [Concomitant]
  6. LIPITOR [Concomitant]
  7. ACTOS [Concomitant]
  8. BUMETANIDE [Concomitant]
  9. PROVENTIL [Concomitant]
  10. HUMALOG [Concomitant]
  11. LANTUS [Concomitant]
  12. ASTELIN [Concomitant]
  13. PRILOSEC [Concomitant]
  14. CARTIA XT [Concomitant]

REACTIONS (1)
  - ORAL DISCOMFORT [None]
